FAERS Safety Report 6144961-1 (Version None)
Quarter: 2009Q2

REPORT INFORMATION
  Report Type: 
  Country: None (occurrence: None)
  Receive Date: 20090406
  Receipt Date: 20090325
  Transmission Date: 20091009
  Serious: Yes (Hospitalization)
  Sender: FDA-Public Use
  Company Number: SE-PFIZER INC-2009177214

PATIENT

DRUGS (9)
  1. BLINDED *PLACEBO [Suspect]
     Indication: PROSTATE CANCER
     Dosage: EVERY DAY
     Route: 048
     Dates: start: 20090205
  2. BLINDED SUNITINIB MALATE [Suspect]
     Indication: PROSTATE CANCER
     Dosage: EVERY DAY
     Route: 048
     Dates: start: 20090205
  3. PREDNISOLONE AND PREDNISOLONE STEAGLATE [Suspect]
     Indication: PROSTATE CANCER
     Dosage: 5 MG TWICE, EVERY DAY;
     Route: 048
     Dates: start: 20090205
  4. PARACETAMOL [Concomitant]
     Dosage: 1000 MG, 1X/DAY
     Route: 048
     Dates: start: 20080101
  5. GLIBENCLAMIDE [Concomitant]
     Dosage: 3.5 MG, 2X/DAY
     Route: 048
     Dates: start: 19940101
  6. ALFUZOSIN [Concomitant]
     Dosage: 10 MG, 1X/DAY
     Route: 048
  7. SIMVASTATIN [Concomitant]
     Dosage: 40 MG, 1X/DAY
     Route: 048
  8. LOPERAMIDE [Concomitant]
     Dosage: 2 MG, AS NEEDED
     Route: 048
     Dates: start: 20080101
  9. METOCLOPRAMIDE [Concomitant]
     Dosage: 10 MG, AS NEEDED
     Route: 048
     Dates: start: 20080101

REACTIONS (2)
  - NAUSEA [None]
  - VOMITING [None]
